FAERS Safety Report 6270774-6 (Version None)
Quarter: 2009Q3

REPORT INFORMATION
  Report Type: 
  Country: None (occurrence: None)
  Receive Date: 20090714
  Receipt Date: 20090701
  Transmission Date: 20100115
  Serious: Yes (Other)
  Sender: FDA-Public Use
  Company Number: 2009SP014991

PATIENT

DRUGS (1)
  1. TEMOZOLOMIDE [Suspect]
     Indication: ANAPLASTIC ASTROCYTOMA
     Dates: start: 20050808, end: 20070430

REACTIONS (4)
  - FALL [None]
  - HUMERUS FRACTURE [None]
  - PELVIC FRACTURE [None]
  - RADIUS FRACTURE [None]
